FAERS Safety Report 6215576-1 (Version None)
Quarter: 2009Q2

REPORT INFORMATION
  Report Type: 
  Country: None (occurrence: None)
  Receive Date: 20090605
  Receipt Date: 20070403
  Transmission Date: 20091009
  Serious: Yes (Hospitalization, Other)
  Sender: FDA-Public Use
  Company Number: US-ASTRAZENECA-2006UW03004

PATIENT
  Age: 15345 Day
  Sex: Female
  Weight: 95 kg

DRUGS (25)
  1. SEROQUEL [Suspect]
     Indication: INSOMNIA
     Route: 048
     Dates: end: 20000101
  2. SEROQUEL [Suspect]
     Indication: DELUSION
     Route: 048
     Dates: end: 20000101
  3. SEROQUEL [Suspect]
     Indication: DEPRESSION
     Route: 048
     Dates: end: 20000101
  4. SEROQUEL [Suspect]
     Route: 048
     Dates: start: 20010312, end: 20050307
  5. SEROQUEL [Suspect]
     Route: 048
     Dates: start: 20010312, end: 20050307
  6. SEROQUEL [Suspect]
     Route: 048
     Dates: start: 20010312, end: 20050307
  7. SEROQUEL [Suspect]
     Route: 048
     Dates: start: 20040421
  8. SEROQUEL [Suspect]
     Route: 048
     Dates: start: 20040421
  9. SEROQUEL [Suspect]
     Route: 048
     Dates: start: 20040421
  10. HALDOL [Concomitant]
  11. RISPERDAL [Concomitant]
     Dates: start: 20020809, end: 20040917
  12. STELAZINE [Concomitant]
     Dates: start: 19990101
  13. ACTOS [Concomitant]
     Route: 048
     Dates: start: 20040824
  14. PREDNISONE [Concomitant]
     Indication: RHEUMATOID ARTHRITIS
     Route: 048
     Dates: start: 20040824
  15. PREDNISONE [Concomitant]
     Indication: ECZEMA
     Route: 048
     Dates: start: 20040824
  16. ELAVIL [Concomitant]
     Route: 048
     Dates: start: 20040824
  17. ALTACE [Concomitant]
     Route: 048
     Dates: start: 20040824
  18. ZOCOR [Concomitant]
     Indication: HYPERCHOLESTEROLAEMIA
     Route: 048
     Dates: start: 20040824
  19. PREVACID [Concomitant]
     Dosage: EVERY DAY
     Route: 048
     Dates: start: 20040824
  20. ALLEGRA [Concomitant]
     Dosage: EVERY DAY
     Route: 048
     Dates: start: 20040824
  21. THEOPHYLLINE [Concomitant]
     Route: 048
     Dates: start: 20040824
  22. ALBUTEROL [Concomitant]
     Dates: start: 20040824
  23. DIAZEPAM [Concomitant]
     Route: 048
     Dates: start: 20040824
  24. NEURONTIN [Concomitant]
     Route: 048
     Dates: start: 20040824
  25. EFFEXOR XR [Concomitant]
     Route: 048
     Dates: start: 20050625

REACTIONS (5)
  - DIABETES MELLITUS INADEQUATE CONTROL [None]
  - DIABETIC KETOACIDOSIS [None]
  - NEUROPATHY PERIPHERAL [None]
  - TYPE 2 DIABETES MELLITUS [None]
  - WEIGHT INCREASED [None]
